FAERS Safety Report 23311229 (Version 1)
Quarter: 2023Q4

REPORT INFORMATION
  Report Type: Spontaneous
  Country: DE (occurrence: DE)
  Receive Date: 20231219
  Receipt Date: 20231219
  Transmission Date: 20240109
  Serious: Yes (Hospitalization)
  Sender: FDA-Public Use
  Company Number: None

PATIENT
  Age: 77 Year
  Weight: 90.7 kg

DRUGS (3)
  1. NITRENDIPINE [Suspect]
     Active Substance: NITRENDIPINE
     Indication: Essential hypertension
     Dosage: 10 MG
     Route: 065
     Dates: start: 199905, end: 20000507
  2. CARBAMAZEPINE [Suspect]
     Active Substance: CARBAMAZEPINE
     Dosage: 400
     Route: 048
     Dates: start: 20000512
  3. CARBAMAZEPINE [Suspect]
     Active Substance: CARBAMAZEPINE
     Indication: Trigeminal neuralgia
     Dosage: 400
     Route: 048
     Dates: start: 200005, end: 20000507

REACTIONS (2)
  - Atrioventricular block complete [Not Recovered/Not Resolved]
  - Bradycardia [Recovering/Resolving]

NARRATIVE: CASE EVENT DATE: 20000507
